FAERS Safety Report 8304281-3 (Version None)
Quarter: 2012Q2

REPORT INFORMATION
  Report Type: 
  Country: None (occurrence: None)
  Receive Date: 20120423
  Receipt Date: 20120423
  Transmission Date: 20120825
  Serious: Yes (Other)
  Sender: FDA-Public Use
  Company Number: None

PATIENT
  Age: 54 Year
  Sex: Female
  Weight: 76.657 kg

DRUGS (2)
  1. VISIBLY EVEN [Suspect]
     Indication: PROPHYLAXIS AGAINST SOLAR RADIATION
     Route: 061
     Dates: start: 20120301, end: 20120328
  2. VISIBLY EVEN [Suspect]
     Indication: RASH MACULAR
     Route: 061
     Dates: start: 20120301, end: 20120328

REACTIONS (1)
  - APPLICATION SITE EXFOLIATION [None]
